FAERS Safety Report 4761321-6 (Version None)
Quarter: 2005Q3

REPORT INFORMATION
  Report Type: 
  Country: None (occurrence: None)
  Receive Date: 20050901
  Receipt Date: 20050420
  Transmission Date: 20060218
  Serious: Yes (Hospitalization)
  Sender: FDA-Public Use
  Company Number: 2005FR-00252

PATIENT
  Age: 41 Year
  Sex: Male

DRUGS (4)
  1. ASPIRIN [Suspect]
     Indication: ANALGESIC EFFECT
     Dosage: ORAL
     Route: 048
     Dates: start: 20050201, end: 20050325
  2. CITALOPRAM [Suspect]
     Indication: DEPRESSION
     Dosage: 20 MG OD ORAL
     Route: 048
     Dates: start: 20040901
  3. DICLOFENAC [Suspect]
     Indication: PAIN IN EXTREMITY
     Dosage: ORAL
     Route: 048
     Dates: start: 20010101, end: 20050325
  4. ALBUTEROL SULFATE HFA [Concomitant]

REACTIONS (4)
  - DRUG INTERACTION [None]
  - GASTROINTESTINAL HAEMORRHAGE [None]
  - HAEMATEMESIS [None]
  - MELAENA [None]
